FAERS Safety Report 14274736 (Version 9)
Quarter: 2024Q2

REPORT INFORMATION
  Report Type: Spontaneous
  Country: FR (occurrence: FR)
  Receive Date: 20171212
  Receipt Date: 20240403
  Transmission Date: 20240715
  Serious: Yes (Life-Threatening, Hospitalization, Other)
  Sender: FDA-Public Use
  Company Number: FR-ROCHE-2031433

PATIENT
  Age: 75 Year
  Sex: Male
  Weight: 88 kg

DRUGS (42)
  1. PANTOPRAZOLE [Suspect]
     Active Substance: PANTOPRAZOLE
     Indication: Gastrooesophageal reflux disease
     Dosage: 20 MILLIGRAM, QD
     Route: 048
     Dates: start: 20150101, end: 20171025
  2. PANTOPRAZOLE [Suspect]
     Active Substance: PANTOPRAZOLE
     Dosage: 20 MILLIGRAM, QD
     Route: 048
     Dates: start: 2015, end: 20171025
  3. PANTOPRAZOLE [Suspect]
     Active Substance: PANTOPRAZOLE
     Dosage: 20 MILLIGRAM, QD
     Route: 048
     Dates: start: 20171025
  4. COLCHICINE [Suspect]
     Active Substance: COLCHICINE
     Indication: Gout
     Dosage: 1 MILLIGRAM, QD
     Route: 048
     Dates: start: 20170914, end: 20170921
  5. COLCHICINE [Suspect]
     Active Substance: COLCHICINE
     Dosage: 1 DOSAGE FORM, QD
     Route: 048
     Dates: start: 20170914, end: 20170921
  6. AMLODIPINE [Suspect]
     Active Substance: AMLODIPINE BESYLATE
     Indication: Hypertension
     Dosage: 10 MILLIGRAM, QD
     Route: 048
     Dates: start: 20170825, end: 20170927
  7. DAFALGAN [Suspect]
     Active Substance: ACETAMINOPHEN
     Indication: Pain
     Dosage: 1000 MILLIGRAM, TID
     Route: 048
     Dates: start: 20171009
  8. DAFALGAN [Suspect]
     Active Substance: ACETAMINOPHEN
     Dosage: 3000 MILLIGRAM, QD
     Route: 048
     Dates: start: 20171009
  9. DAFALGAN [Suspect]
     Active Substance: ACETAMINOPHEN
     Dosage: 1000 MILLIGRAM, QD
     Route: 048
     Dates: start: 20171009
  10. DAFALGAN [Suspect]
     Active Substance: ACETAMINOPHEN
     Dosage: 3000 MILLIGRAM, QD
     Route: 048
     Dates: start: 20171019
  11. METFORMIN [Suspect]
     Active Substance: METFORMIN HYDROCHLORIDE
     Indication: Diabetes mellitus
     Dosage: 500 MILLIGRAM, Q12H
     Route: 048
     Dates: start: 20170824, end: 20171025
  12. METFORMIN [Suspect]
     Active Substance: METFORMIN HYDROCHLORIDE
     Dosage: 500 MILLIGRAM, QD
     Route: 048
     Dates: start: 20170824
  13. VALIUM [Suspect]
     Active Substance: DIAZEPAM
     Indication: Depressive symptom
     Dosage: 10 MILLIGRAM, TID
     Route: 048
     Dates: start: 20170101, end: 20170927
  14. VALIUM [Suspect]
     Active Substance: DIAZEPAM
     Dosage: 10 MILLIGRAM, QD
     Route: 048
     Dates: start: 20170101, end: 20170927
  15. VALIUM [Suspect]
     Active Substance: DIAZEPAM
     Dosage: 3 MICROGRAM, QD
     Route: 048
     Dates: start: 20170101, end: 20170927
  16. FUROSEMIDE [Suspect]
     Active Substance: FUROSEMIDE
     Indication: Hypertension
     Dosage: 30 MILLIGRAM, BID
     Route: 048
     Dates: start: 20170825, end: 20171003
  17. FUROSEMIDE [Suspect]
     Active Substance: FUROSEMIDE
     Dosage: UNK UNK, QD
     Route: 048
     Dates: start: 20170825, end: 20171003
  18. FUROSEMIDE [Suspect]
     Active Substance: FUROSEMIDE
     Dosage: 30 MILLIGRAM, QD
     Route: 048
     Dates: start: 20210625
  19. ALPRAZOLAM [Suspect]
     Active Substance: ALPRAZOLAM
     Indication: Depressive symptom
     Dosage: 0.75 MILLIGRAM, QD
     Route: 048
     Dates: start: 20170728
  20. ALPRAZOLAM [Suspect]
     Active Substance: ALPRAZOLAM
     Dosage: 0.75 MILLIGRAM, QD
     Route: 048
     Dates: start: 20170728
  21. ALPRAZOLAM [Suspect]
     Active Substance: ALPRAZOLAM
     Dosage: 0.25 MILLIGRAM, Q8HR
     Route: 048
     Dates: start: 20170728
  22. ALPRAZOLAM [Suspect]
     Active Substance: ALPRAZOLAM
     Dosage: 0.25 MILLIGRAM, Q8HR
     Route: 048
     Dates: start: 20170928
  23. ALPRAZOLAM [Suspect]
     Active Substance: ALPRAZOLAM
     Dosage: 0.25 MILLIGRAM, Q8HR
     Route: 048
     Dates: start: 20170928
  24. MIRTAZAPINE [Suspect]
     Active Substance: MIRTAZAPINE
     Indication: Depressive symptom
     Dosage: 15 MILLIGRAM, QD
     Route: 048
     Dates: start: 20170910
  25. NEFOPAM HYDROCHLORIDE [Suspect]
     Active Substance: NEFOPAM HYDROCHLORIDE
     Indication: Pain
     Dosage: UNK UNK, TID
     Route: 048
  26. NEFOPAM HYDROCHLORIDE [Suspect]
     Active Substance: NEFOPAM HYDROCHLORIDE
     Dosage: 3 MICROGRAM, QD
     Route: 048
  27. NEFOPAM HYDROCHLORIDE [Suspect]
     Active Substance: NEFOPAM HYDROCHLORIDE
     Dosage: UNK UNK, QD
     Route: 048
  28. NEFOPAM HYDROCHLORIDE [Suspect]
     Active Substance: NEFOPAM HYDROCHLORIDE
     Dosage: UNK UNK, Q8HR
     Route: 048
  29. NEFOPAM HYDROCHLORIDE [Suspect]
     Active Substance: NEFOPAM HYDROCHLORIDE
     Dosage: 3 DOSAGE FORM, QD
     Route: 048
  30. NEFOPAM HYDROCHLORIDE [Suspect]
     Active Substance: NEFOPAM HYDROCHLORIDE
     Dosage: 1 DOSAGE FORM, Q8HR
     Route: 048
  31. NEFOPAM HYDROCHLORIDE [Suspect]
     Active Substance: NEFOPAM HYDROCHLORIDE
     Dosage: 1 DOSAGE FORM, Q8HR
     Route: 048
  32. POTASSIUM CHLORIDE [Suspect]
     Active Substance: POTASSIUM CHLORIDE
     Indication: Hypokalaemia
     Dosage: UNK
     Route: 048
     Dates: start: 20170824, end: 20171003
  33. POTASSIUM CHLORIDE [Suspect]
     Active Substance: POTASSIUM CHLORIDE
     Dosage: UNK UNK, QD
     Route: 048
     Dates: start: 20170824
  34. XARELTO [Suspect]
     Active Substance: RIVAROXABAN
     Indication: Atrial fibrillation
     Dosage: 20 MILLIGRAM, QD
     Route: 048
     Dates: start: 20170824, end: 20171025
  35. ESCITALOPRAM OXALATE [Suspect]
     Active Substance: ESCITALOPRAM OXALATE
     Indication: Depressive symptom
     Dosage: 1 DOSAGE FORM, QD
     Route: 048
     Dates: start: 20170101, end: 20170910
  36. LEVOFLOXACIN [Suspect]
     Active Substance: LEVOFLOXACIN
     Indication: Lung disorder
     Dosage: 500 MILLIGRAM, QD
     Route: 048
     Dates: start: 20170905, end: 20170919
  37. LEVOFLOXACIN [Suspect]
     Active Substance: LEVOFLOXACIN
     Dosage: 250 MILLIGRAM, Q12H
     Route: 065
     Dates: start: 20170905, end: 20170919
  38. BISOPROLOL FUMARATE [Suspect]
     Active Substance: BISOPROLOL FUMARATE
     Indication: Hypertension
     Dosage: 1.25 MILLIGRAM, QD
     Route: 048
     Dates: start: 20171006
  39. TERBUTALINE SULFATE [Suspect]
     Active Substance: TERBUTALINE SULFATE
     Indication: Lung disorder
     Dosage: 1 DOSAGE FORM, QD
     Route: 055
     Dates: start: 20170914, end: 20170921
  40. TERBUTALINE SULFATE [Suspect]
     Active Substance: TERBUTALINE SULFATE
     Dosage: 1 MICROGRAM
     Route: 055
  41. IRBESARTAN [Suspect]
     Active Substance: IRBESARTAN
     Indication: Hypertension
     Dosage: 300 MILLIGRAM, QD
     Route: 048
     Dates: start: 20150101, end: 20171006
  42. IRBESARTAN [Suspect]
     Active Substance: IRBESARTAN
     Dosage: 300 MILLIGRAM, QD
     Route: 048
     Dates: start: 2015

REACTIONS (1)
  - Agranulocytosis [Recovered/Resolved]

NARRATIVE: CASE EVENT DATE: 20171024
